FAERS Safety Report 6608084-7 (Version None)
Quarter: 2010Q1

REPORT INFORMATION
  Report Type: 
  Country: None (occurrence: None)
  Receive Date: 20100301
  Receipt Date: 20100222
  Transmission Date: 20100710
  Serious: Yes (Death, Other)
  Sender: FDA-Public Use
  Company Number: CHPA2010US03763

PATIENT
  Age: 29 Year
  Sex: Male

DRUGS (2)
  1. ACETAMINOPHEN (PARACETAMOL),DIPHENHYDRAMINE HYDROCHLORIDE (NCH) [Suspect]
     Dosage: UNK, UNK
     Route: 048
  2. SERTRALINE HCL [Suspect]
     Dosage: UNK, UNK
     Route: 048

REACTIONS (8)
  - ASPIRATION [None]
  - COMPLETED SUICIDE [None]
  - DRUG TOXICITY [None]
  - ENDOTRACHEAL INTUBATION [None]
  - EXTUBATION [None]
  - MYOCARDIAL INFARCTION [None]
  - THERAPEUTIC PROCEDURE [None]
  - VOMITING [None]
